FAERS Safety Report 5232270-4 (Version None)
Quarter: 2007Q1

REPORT INFORMATION
  Report Type: 
  Country: None (occurrence: None)
  Receive Date: 20070207
  Receipt Date: 20070126
  Transmission Date: 20070707
  Serious: Yes (Death, Congenital Anomaly)
  Sender: FDA-Public Use
  Company Number: HQWYE884130JAN07

PATIENT
  Sex: Male

DRUGS (3)
  1. EFFEXOR XR [Suspect]
     Route: 050
     Dates: start: 20060301
  2. CLOMID [Suspect]
     Dosage: UNKNOWN
     Route: 064
  3. FLOMAX [Suspect]
     Indication: PROSTATITIS
     Dosage: ^0.4 DAILY^
     Route: 050

REACTIONS (7)
  - ANOMALY OF EXTERNAL EAR CONGENITAL [None]
  - INTRA-UTERINE DEATH [None]
  - LIMB MALFORMATION [None]
  - LOW SET EARS [None]
  - SKULL MALFORMATION [None]
  - TRANSMISSION OF DRUG VIA SEMEN [None]
  - UMBILICAL CORD ABNORMALITY [None]
